FAERS Safety Report 24161290 (Version 1)
Quarter: 2024Q3

REPORT INFORMATION
  Report Type: Spontaneous
  Country: NL (occurrence: NL)
  Receive Date: 20240801
  Receipt Date: 20240801
  Transmission Date: 20241016
  Serious: Yes (Hospitalization)
  Sender: RANBAXY
  Company Number: NL-LRB-00971827

PATIENT
  Age: 62 Year
  Sex: Male
  Weight: 94 kg

DRUGS (14)
  1. ATORVASTATIN [Suspect]
     Active Substance: ATORVASTATIN
     Indication: Prophylaxis
     Dosage: 20 MILLIGRAM, TABLET, 20 MG (MILLIGRAM),
     Route: 065
     Dates: start: 20161018, end: 20240310
  2. ASCORBINEZUUR [Concomitant]
     Indication: Product used for unknown indication
     Dosage: TABLET, 500 MG (MILLIGRAM)
     Route: 065
  3. LACTULOSE STROOP [Concomitant]
     Indication: Product used for unknown indication
     Dosage: STROOP, 670 MG/ML (MILLIGRAM PER MILLILITER)
     Route: 065
  4. ZINKSULFAAT DRANK [Concomitant]
     Indication: Product used for unknown indication
     Dosage: DRANK, 10 MG/ML (MILLIGRAM PER MILLILITER)
     Route: 065
  5. KOELZALF [Concomitant]
     Indication: Product used for unknown indication
     Dosage: CREME
     Route: 065
  6. THIAMINE [Concomitant]
     Active Substance: THIAMINE
     Indication: Product used for unknown indication
     Dosage: TABLET, 50 MG (MILLIGRAM)
     Route: 065
  7. VITAMINE B COMPLEX FORTE [Concomitant]
     Indication: Product used for unknown indication
     Dosage: TABLET
     Route: 065
  8. LEVETIRACETAM [Concomitant]
     Active Substance: LEVETIRACETAM
     Indication: Product used for unknown indication
     Dosage: FILM-COATED TABLET, 500 MG (MILLIGRAM)
     Route: 065
  9. SPIRONOLACTONE [Concomitant]
     Active Substance: SPIRONOLACTONE
     Indication: Product used for unknown indication
     Dosage: TABLET, 25 MG (MILLIGRAM)
     Route: 065
  10. TRIAMCINOLONE ACETONIDE [Concomitant]
     Active Substance: TRIAMCINOLONE ACETONIDE
     Indication: Product used for unknown indication
     Dosage: CREME, 1 MG/G (MILLIGRAM PER GRAM)
     Route: 065
  11. FUROSEMIDE [Concomitant]
     Active Substance: FUROSEMIDE
     Indication: Product used for unknown indication
     Dosage: TABLET, 40 MG (MILLIGRAM)
     Route: 065
  12. ESOMEPRAZOLE [Concomitant]
     Active Substance: ESOMEPRAZOLE
     Indication: Product used for unknown indication
     Dosage: GASTRO-RESISTANT CAPSULE, 40 MG (MILLIGRAM)
     Route: 065
  13. CARBOMEER OOGGEL [Concomitant]
     Indication: Product used for unknown indication
     Dosage: OOGGEL, 2 MG/G (MILLIGRAM PER GRAM)
     Route: 065
  14. AMLODIPINE [Concomitant]
     Active Substance: AMLODIPINE BESYLATE
     Indication: Product used for unknown indication
     Dosage: TABLET, 5 MG (MILLIGRAM)
     Route: 065

REACTIONS (1)
  - Dermatomyositis [Recovered/Resolved]
